FAERS Safety Report 6601599-7 (Version None)
Quarter: 2010Q1

REPORT INFORMATION
  Report Type: 
  Country: None (occurrence: None)
  Receive Date: 20100225
  Receipt Date: 20100205
  Transmission Date: 20100710
  Serious: Yes (Hospitalization)
  Sender: FDA-Public Use
  Company Number: ES-ROCHE-621413

PATIENT
  Sex: Female

DRUGS (9)
  1. TOCILIZUMAB [Suspect]
     Dosage: STARTING DOSE: 8 MG/KG TOTAL MONTHLY DOSE: 544 MG.
     Route: 042
     Dates: start: 20060123
  2. TOCILIZUMAB [Suspect]
     Route: 042
     Dates: end: 20081001
  3. TOCILIZUMAB [Suspect]
     Route: 042
     Dates: start: 20081127
  4. TOCILIZUMAB [Suspect]
     Indication: RHEUMATOID ARTHRITIS
     Dosage: PATIENT WAS PREVIOUSLY IN WA18063 STUDY.
     Route: 042
     Dates: start: 20060123, end: 20060320
  5. TOCILIZUMAB [Suspect]
     Route: 042
     Dates: end: 20060409
  6. TOCILIZUMAB [Suspect]
     Route: 042
     Dates: start: 20060503
  7. DMARD [Concomitant]
  8. METHOTREXATE [Concomitant]
     Route: 048
  9. CORTICOSTEROID NOS [Concomitant]
     Route: 048

REACTIONS (1)
  - TONGUE NEOPLASM MALIGNANT STAGE UNSPECIFIED [None]
